FAERS Safety Report 5643891-9 (Version None)
Quarter: 2008Q1

REPORT INFORMATION
  Report Type: 
  Country: None (occurrence: None)
  Receive Date: 20080228
  Receipt Date: 20080222
  Transmission Date: 20080703
  Serious: No
  Sender: FDA-Public Use
  Company Number: NL-BAXTER-2008BH000442

PATIENT
  Age: 79 Year
  Sex: Female

DRUGS (14)
  1. TISSUCOL/TISSEEL DUO STIM3 [Suspect]
     Indication: LYMPHADENECTOMY
     Route: 065
     Dates: start: 20071018, end: 20071018
  2. TISSUCOL/TISSEEL DUO STIM3 [Suspect]
     Indication: MASTECTOMY
     Route: 065
     Dates: start: 20071018, end: 20071018
  3. OXAZEPAM [Concomitant]
  4. BETAHISTINE [Concomitant]
  5. SIMVASTATIN [Concomitant]
  6. DIGOXIN [Concomitant]
  7. VITAMIN K [Concomitant]
  8. LISINOPRIL [Concomitant]
  9. SOTALOL [Concomitant]
  10. LASIX [Concomitant]
  11. ZYRTEC [Concomitant]
  12. SYMBICORT TURBUHALER ^DRACO^ [Concomitant]
  13. SINTROM [Concomitant]
     Dosage: DOSE UNIT:UNKNOWN
  14. ISORDIL [Concomitant]

REACTIONS (3)
  - IMPAIRED HEALING [None]
  - SEROMA [None]
  - WOUND INFECTION [None]
